FAERS Safety Report 15795049 (Version 3)
Quarter: 2019Q1

REPORT INFORMATION
  Report Type: Spontaneous
  Country: US (occurrence: US)
  Receive Date: 20190107
  Receipt Date: 20190116
  Transmission Date: 20190417
  Serious: Yes (Death, Hospitalization)
  Sender: FDA-Public Use
  Company Number: US-PFIZER INC-2019007524

PATIENT
  Age: 82 Year
  Sex: Male

DRUGS (1)
  1. METHOTREXATE SODIUM. [Suspect]
     Active Substance: METHOTREXATE SODIUM
     Dosage: UNK (INGST)
     Route: 048

REACTIONS (2)
  - Death [Fatal]
  - Medication error [Fatal]

NARRATIVE: CASE EVENT DATE: 2017
